FAERS Safety Report 9024490 (Version 1)
Quarter: 2013Q1

REPORT INFORMATION
  Report Type: Report from Study
  Country: CA (occurrence: CA)
  Receive Date: 20130121
  Receipt Date: 20130121
  Transmission Date: 20140127
  Serious: Yes (Other)
  Sender: FDA-Public Use
  Company Number: CA-JNJFOC-20130106211

PATIENT
  Age: 47 None
  Sex: Female
  Weight: 130 kg

DRUGS (8)
  1. REMICADE [Suspect]
     Indication: CROHN^S DISEASE
     Route: 042
     Dates: start: 20061124
  2. REMICADE [Suspect]
     Indication: CROHN^S DISEASE
     Route: 042
     Dates: start: 20130108
  3. IMURAN [Concomitant]
     Route: 065
  4. PANTOLOC [Concomitant]
     Route: 065
  5. MACROBID (NITROFURANTOIN) [Concomitant]
     Route: 065
  6. QUESTRAN [Concomitant]
     Route: 065
  7. MAXERAN [Concomitant]
     Route: 065
  8. DICETEL [Concomitant]
     Route: 065

REACTIONS (2)
  - Influenza [Not Recovered/Not Resolved]
  - Asthma [Not Recovered/Not Resolved]
